FAERS Safety Report 5497036-9 (Version None)
Quarter: 2007Q4

REPORT INFORMATION
  Report Type: 
  Country: None (occurrence: None)
  Receive Date: 20071018
  Receipt Date: 20061208
  Transmission Date: 20080405
  Serious: Yes (Other)
  Sender: FDA-Public Use
  Company Number: 2005107261

PATIENT
  Age: 62 Year
  Sex: Female

DRUGS (5)
  1. NEURONTIN [Suspect]
     Indication: BIPOLAR DISORDER
     Dosage: (400 MG), ORAL
     Route: 048
     Dates: start: 19980101
  2. NEURONTIN [Suspect]
     Indication: PAIN
     Dosage: (400 MG), ORAL
     Route: 048
     Dates: start: 19980101
  3. WELLBUTRIN SR [Concomitant]
  4. EFFEXOR XR [Concomitant]
  5. ELAVIL (AMTRIPTYLINE HYDROCHLORIDE) [Concomitant]

REACTIONS (2)
  - DRUG INEFFECTIVE [None]
  - SUICIDE ATTEMPT [None]
